FAERS Safety Report 13849848 (Version 1)
Quarter: 2017Q3

REPORT INFORMATION
  Report Type: Spontaneous
  Country: BR (occurrence: BR)
  Receive Date: 20170809
  Receipt Date: 20170809
  Transmission Date: 20171127
  Serious: Yes (Death, Other)
  Sender: FDA-Public Use
  Company Number: BR-ROCHE-1972247

PATIENT
  Age: 57 Year
  Sex: Female

DRUGS (1)
  1. XELODA [Suspect]
     Active Substance: CAPECITABINE
     Indication: BREAST CANCER
     Route: 065

REACTIONS (6)
  - Haematemesis [Unknown]
  - Mouth injury [Unknown]
  - Dizziness [Unknown]
  - Death [Fatal]
  - Vomiting [Unknown]
  - Haemorrhage [Unknown]
